FAERS Safety Report 7526698-7 (Version None)
Quarter: 2011Q2

REPORT INFORMATION
  Report Type: 
  Country: None (occurrence: None)
  Receive Date: 20110606
  Receipt Date: 20110525
  Transmission Date: 20111010
  Serious: Yes (Hospitalization)
  Sender: FDA-Public Use
  Company Number: CN-ELI_LILLY_AND_COMPANY-CN201105007709

PATIENT
  Sex: Female
  Weight: 75 kg

DRUGS (2)
  1. HUMULIN 70/30 [Suspect]
     Indication: DIABETES MELLITUS
     Dosage: 20 U, EACH MORNING
     Route: 058
     Dates: start: 20110420, end: 20110523
  2. HUMULIN 70/30 [Suspect]
     Dosage: 18 U, EACH EVENING
     Route: 058
     Dates: start: 20110420, end: 20110523

REACTIONS (2)
  - HEADACHE [None]
  - EYE SWELLING [None]
